FAERS Safety Report 25105638 (Version 1)
Quarter: 2025Q1

REPORT INFORMATION
  Report Type: Spontaneous
  Country: US (occurrence: US)
  Receive Date: 20250321
  Receipt Date: 20250321
  Transmission Date: 20250409
  Serious: No
  Sender: ESPERION THERAPEUTICS
  Company Number: US-ESPERIONTHERAPEUTICS-2024USA00858

PATIENT
  Age: 47 Year
  Sex: Female

DRUGS (6)
  1. NEXLETOL [Suspect]
     Active Substance: BEMPEDOIC ACID
     Indication: Type IIa hyperlipidaemia
     Route: 065
     Dates: start: 2020, end: 2021
  2. NIACIN [Concomitant]
     Active Substance: NIACIN
     Route: 065
     Dates: start: 2010, end: 2022
  3. ALIROCUMAB [Concomitant]
     Active Substance: ALIROCUMAB
     Route: 065
  4. EZETIMIBE [Concomitant]
     Active Substance: EZETIMIBE
     Route: 065
  5. EZETIMIBE\SIMVASTATIN [Concomitant]
     Active Substance: EZETIMIBE\SIMVASTATIN
     Route: 065
  6. COLESEVELAM [Concomitant]
     Active Substance: COLESEVELAM
     Route: 065

REACTIONS (1)
  - Adverse drug reaction [Unknown]
